FAERS Safety Report 5890437-6 (Version None)
Quarter: 2008Q3

REPORT INFORMATION
  Report Type: 
  Country: None (occurrence: None)
  Receive Date: 20080922
  Receipt Date: 20080909
  Transmission Date: 20090109
  Serious: Yes (Disabling)
  Sender: FDA-Public Use
  Company Number: GB-RANBAXY-2008RR-17989

PATIENT

DRUGS (2)
  1. SERTRALINE HYDROCHLORIDE [Suspect]
     Indication: DEPRESSION
     Dosage: 150 MG, QD
     Route: 048
     Dates: end: 20080816
  2. TRAZODONE HCL [Concomitant]
     Indication: DEPRESSION
     Dosage: 100 MG, TID
     Route: 048

REACTIONS (1)
  - DRUG INEFFECTIVE [None]
